FAERS Safety Report 4318035-6 (Version None)
Quarter: 2004Q1

REPORT INFORMATION
  Report Type: 
  Country: None (occurrence: None)
  Receive Date: 20040317
  Receipt Date: 20040305
  Transmission Date: 20041129
  Serious: Yes (Other)
  Sender: FDA-Public Use
  Company Number: US-BRISTOL-MYERS SQUIBB COMPANY-12525259

PATIENT
  Age: 14 Year
  Sex: Female

DRUGS (2)
  1. ABILIFY [Suspect]
     Route: 048
  2. TYLENOL (CAPLET) [Concomitant]

REACTIONS (2)
  - ANGER [None]
  - PHYSICAL ASSAULT [None]
